FAERS Safety Report 5376586-X (Version None)
Quarter: 2007Q3

REPORT INFORMATION
  Report Type: 
  Country: None (occurrence: None)
  Receive Date: 20070702
  Receipt Date: 20070626
  Transmission Date: 20080115
  Serious: Yes (Hospitalization, Disabling)
  Sender: FDA-Public Use
  Company Number: US-MERCK-0705USA00401

PATIENT
  Age: 55 Year
  Sex: Male
  Weight: 127 kg

DRUGS (10)
  1. ZETIA [Suspect]
     Indication: HYPERLIPIDAEMIA
     Route: 048
     Dates: start: 20060811, end: 20070413
  2. ZETIA [Suspect]
     Indication: LOW DENSITY LIPOPROTEIN INCREASED
     Route: 048
     Dates: start: 20060811, end: 20070413
  3. TRICOR [Suspect]
     Indication: HYPERLIPIDAEMIA
     Route: 048
     Dates: start: 20060416, end: 20070413
  4. TOPROL-XL [Concomitant]
     Indication: CORONARY ARTERY DISEASE
     Route: 048
     Dates: start: 20030508
  5. TOPROL-XL [Concomitant]
     Indication: HYPERTENSION
     Route: 048
     Dates: start: 20030508
  6. NITROSTAT [Concomitant]
     Route: 065
  7. ACTOS [Concomitant]
     Route: 065
  8. METFORMIN [Concomitant]
     Route: 065
  9. ASPIRIN [Concomitant]
     Indication: CORONARY ARTERY DISEASE
     Route: 048
     Dates: start: 20030508
  10. CLARINEX [Concomitant]
     Indication: HYPERSENSITIVITY
     Route: 048
     Dates: start: 20010201

REACTIONS (5)
  - ANXIETY [None]
  - INSOMNIA [None]
  - MENTAL STATUS CHANGES [None]
  - RHABDOMYOLYSIS [None]
  - SLEEP APNOEA SYNDROME [None]
